FAERS Safety Report 24841063 (Version 1)
Quarter: 2025Q1

REPORT INFORMATION
  Report Type: Spontaneous
  Country: US (occurrence: US)
  Receive Date: 20250114
  Receipt Date: 20250114
  Transmission Date: 20250408
  Serious: Yes (Hospitalization)
  Sender: SANOFI AVENTIS
  Company Number: US-SA-2025SA011461

PATIENT
  Age: 54 Year
  Sex: Female
  Weight: 86.36 kg

DRUGS (8)
  1. DUPIXENT [Suspect]
     Active Substance: DUPILUMAB
     Indication: Dermatitis atopic
     Dosage: 300 MG, QOW
     Route: 058
     Dates: start: 202301
  2. IBUPROFEN [Concomitant]
     Active Substance: IBUPROFEN
  3. BENZONATATE [Concomitant]
     Active Substance: BENZONATATE
  4. LEVOFLOXACIN [Concomitant]
     Active Substance: LEVOFLOXACIN
  5. CEPHALEXIN [Concomitant]
     Active Substance: CEPHALEXIN
  6. VALSARTAN [Concomitant]
     Active Substance: VALSARTAN
  7. VITAMIN D2 [Concomitant]
     Active Substance: ERGOCALCIFEROL
  8. OXYCODONE AND ACETAMINOPHEN [Concomitant]
     Active Substance: ACETAMINOPHEN\OXYCODONE HYDROCHLORIDE

REACTIONS (2)
  - Infection [Unknown]
  - Abdominoplasty [Unknown]
